FAERS Safety Report 7078659-2 (Version None)
Quarter: 2010Q4

REPORT INFORMATION
  Report Type: 
  Country: None (occurrence: None)
  Receive Date: 20101102
  Receipt Date: 20101029
  Transmission Date: 20110411
  Serious: Yes (Life-Threatening)
  Sender: FDA-Public Use
  Company Number: JP-ASTRAZENECA-2010SE48260

PATIENT
  Age: 65 Year
  Sex: Female
  Weight: 42 kg

DRUGS (9)
  1. IRESSA [Suspect]
     Indication: LUNG ADENOCARCINOMA
     Route: 048
     Dates: start: 20100805, end: 20100930
  2. GABAPEN [Concomitant]
     Indication: CANCER PAIN
     Route: 065
  3. NOVAMIN [Concomitant]
     Route: 065
  4. OXINORM [Concomitant]
     Route: 065
  5. DUROTEP [Concomitant]
     Route: 062
  6. MAGLAX [Concomitant]
     Route: 065
  7. EURODIN [Concomitant]
     Route: 065
  8. PANVITAN [Concomitant]
     Route: 065
  9. HYPEN [Concomitant]
     Route: 065

REACTIONS (1)
  - LUNG DISORDER [None]
